FAERS Safety Report 4908209-5 (Version None)
Quarter: 2006Q1

REPORT INFORMATION
  Report Type: 
  Country: None (occurrence: None)
  Receive Date: 20060210
  Receipt Date: 20051024
  Transmission Date: 20060701
  Serious: Yes (Death)
  Sender: FDA-Public Use
  Company Number: US-MERCK-0511ISR00011

PATIENT
  Sex: Male

DRUGS (2)
  1. VIOXX [Suspect]
     Indication: BACK PAIN
     Route: 048
  2. VIOXX [Suspect]
     Indication: PAIN IN EXTREMITY
     Route: 048

REACTIONS (3)
  - CARDIAC FAILURE [None]
  - MYOCARDIAL INFARCTION [None]
  - PERICARDITIS [None]
